FAERS Safety Report 17992173 (Version 2)
Quarter: 2020Q3

REPORT INFORMATION
  Report Type: Spontaneous
  Country: RO (occurrence: RO)
  Receive Date: 20200708
  Receipt Date: 20200812
  Transmission Date: 20201103
  Serious: Yes (Congenital Anomaly, Other)
  Sender: FDA-Public Use
  Company Number: RO-HETERO-HET2020RO00763

PATIENT
  Sex: Male
  Weight: 3 kg

DRUGS (5)
  1. COMBIVIR [Suspect]
     Active Substance: LAMIVUDINE\ZIDOVUDINE
     Indication: HIV INFECTION
     Dosage: 900 MG, QD
     Route: 064
  2. LAMIVUDINE AND ZIDOVUDINE [Suspect]
     Active Substance: LAMIVUDINE\ZIDOVUDINE
     Indication: HEPATITIS B
  3. NEVIRAPINE. [Suspect]
     Active Substance: NEVIRAPINE
     Indication: HIV INFECTION
     Dosage: 400 MG, QD
     Route: 064
  4. LAMIVUDINE AND ZIDOVUDINE [Suspect]
     Active Substance: LAMIVUDINE\ZIDOVUDINE
     Indication: HIV INFECTION
     Dosage: UNK
     Route: 064
  5. COMBIVIR [Suspect]
     Active Substance: LAMIVUDINE\ZIDOVUDINE
     Indication: HEPATITIS B

REACTIONS (8)
  - Dandy-Walker syndrome [Unknown]
  - Macrocephaly [Unknown]
  - Speech disorder developmental [Unknown]
  - Attention deficit hyperactivity disorder [Unknown]
  - Ataxia [Unknown]
  - Congenital central nervous system anomaly [Unknown]
  - Foetal exposure during pregnancy [Unknown]
  - Neurodevelopmental disorder [Unknown]
